FAERS Safety Report 7900689-6 (Version None)
Quarter: 2011Q4

REPORT INFORMATION
  Report Type: 
  Country: None (occurrence: None)
  Receive Date: 20111108
  Receipt Date: 20111101
  Transmission Date: 20120403
  Serious: Yes (Death)
  Sender: FDA-Public Use
  Company Number: US-CELGENEUS-163-21880-11110416

PATIENT
  Age: 82 Year
  Sex: Male

DRUGS (2)
  1. BLOOD TRANSFUSION [Concomitant]
     Route: 041
  2. REVLIMID [Suspect]
     Route: 048

REACTIONS (1)
  - DEATH [None]
